FAERS Safety Report 11201824 (Version 1)
Quarter: 2015Q2

REPORT INFORMATION
  Report Type: Spontaneous
  Country: US (occurrence: None)
  Receive Date: 20150618
  Receipt Date: 20150618
  Transmission Date: 20150821
  Serious: No
  Sender: FDA-Public Use
  Company Number: None

PATIENT
  Age: 47 Year
  Sex: Female

DRUGS (1)
  1. METHOTREXATE [Suspect]
     Active Substance: METHOTREXATE
     Indication: PRODUCT USED FOR UNKNOWN INDICATION
     Route: 058
     Dates: start: 20150425, end: 20150425

REACTIONS (5)
  - Nausea [None]
  - Nervous system disorder [None]
  - Abdominal pain [None]
  - Vomiting [None]
  - Alopecia [None]

NARRATIVE: CASE EVENT DATE: 20150425
